FAERS Safety Report 8364087-6 (Version None)
Quarter: 2012Q2

REPORT INFORMATION
  Report Type: 
  Country: None (occurrence: None)
  Receive Date: 20120516
  Receipt Date: 20120308
  Transmission Date: 20120825
  Serious: Yes (Other)
  Sender: FDA-Public Use
  Company Number: US-ALEXION-A201200434

PATIENT
  Sex: Female

DRUGS (7)
  1. SOLIRIS [Suspect]
     Indication: PAROXYSMAL NOCTURNAL HAEMOGLOBINURIA
     Dosage: 600 MG, QW
     Route: 042
     Dates: start: 20100901
  2. SOLIRIS [Suspect]
     Dosage: 900 MG, Q2W
     Route: 042
     Dates: start: 20100101
  3. VITAMIN D [Concomitant]
     Dosage: UNK, QD
  4. MAGNESIUM [Concomitant]
     Dosage: UNK, QD
  5. FOLIC ACID [Concomitant]
     Dosage: UNK, QD
  6. ACTONEL [Concomitant]
     Indication: INTERVERTEBRAL DISC DEGENERATION
     Dosage: UNK, Q MONTH
  7. CYCLOSPORINE [Concomitant]
     Dosage: UNK

REACTIONS (6)
  - BACK PAIN [None]
  - FATIGUE [None]
  - VOMITING [None]
  - DEHYDRATION [None]
  - VIRAL INFECTION [None]
  - DIARRHOEA [None]
